FAERS Safety Report 5771932-7 (Version None)
Quarter: 2008Q2

REPORT INFORMATION
  Report Type: 
  Country: None (occurrence: None)
  Receive Date: 20080612
  Receipt Date: 20080612
  Transmission Date: 20081010
  Serious: Yes (Life-Threatening, Other)
  Sender: FDA-Public Use
  Company Number: None

PATIENT
  Age: 58 Year
  Sex: Male
  Weight: 84.8226 kg

DRUGS (1)
  1. EXTENDED PHENYTOIN SODIUM 100 MG SUN LABORATORIES [Suspect]
     Indication: CONVULSION
     Dosage: 600 MG DAILY PO
     Route: 048
     Dates: start: 20080125, end: 20080408

REACTIONS (6)
  - BALANCE DISORDER [None]
  - FACIAL BONES FRACTURE [None]
  - FALL [None]
  - LABYRINTHITIS [None]
  - NERVOUS SYSTEM DISORDER [None]
  - VERTIGO POSITIONAL [None]
